FAERS Safety Report 18158499 (Version 1)
Quarter: 2020Q3

REPORT INFORMATION
  Report Type: Spontaneous
  Country: PK (occurrence: PK)
  Receive Date: 20200817
  Receipt Date: 20200817
  Transmission Date: 20201103
  Serious: Yes (Death, Other)
  Sender: FDA-Public Use
  Company Number: PK-AMNEAL PHARMACEUTICALS-2020-AMRX-02464

PATIENT
  Age: 9 Month

DRUGS (1)
  1. POTASSIUM CHLORIDE. [Suspect]
     Active Substance: POTASSIUM CHLORIDE
     Indication: PRODUCT USED FOR UNKNOWN INDICATION
     Dosage: 15% KCL INJECTION
     Route: 065

REACTIONS (2)
  - Product administration error [Unknown]
  - Adverse event [Fatal]
